FAERS Safety Report 13585454 (Version 1)
Quarter: 2017Q2

REPORT INFORMATION
  Report Type: Spontaneous
  Country: US (occurrence: US)
  Receive Date: 20170526
  Receipt Date: 20170526
  Transmission Date: 20170830
  Serious: No
  Sender: FDA-Public Use
  Company Number: US-GLAXOSMITHKLINE-US2017074093

PATIENT
  Sex: Female

DRUGS (2)
  1. ZEASORB [Suspect]
     Active Substance: MICONAZOLE NITRATE
     Indication: PAIN
  2. ZEASORB [Suspect]
     Active Substance: MICONAZOLE NITRATE
     Indication: RASH
     Dosage: UNK

REACTIONS (1)
  - Product use in unapproved indication [Unknown]
